FAERS Safety Report 10205758 (Version 3)
Quarter: 2017Q4

REPORT INFORMATION
  Report Type: Report from Study
  Country: US (occurrence: US)
  Receive Date: 20140530
  Receipt Date: 20171031
  Transmission Date: 20180320
  Serious: Yes (Other)
  Sender: FDA-Public Use
  Company Number: US-ROCHE-1409669

PATIENT
  Age: 10 Year
  Sex: Female
  Weight: 68.8 kg

DRUGS (11)
  1. CORTEF [Concomitant]
     Active Substance: HYDROCORTISONE
     Route: 048
  2. ZANTAC [Concomitant]
     Active Substance: RANITIDINE HYDROCHLORIDE
     Route: 048
  3. SYNTHROID [Concomitant]
     Active Substance: LEVOTHYROXINE SODIUM
     Indication: HYPOPITUITARISM
     Route: 048
  4. HYDROCORTISONE. [Concomitant]
     Active Substance: HYDROCORTISONE
     Route: 048
  5. SOLU-CORTEF [Concomitant]
     Active Substance: HYDROCORTISONE SODIUM SUCCINATE
     Indication: HYPOPITUITARISM
     Route: 030
  6. POLY-VI-SOL [Concomitant]
     Active Substance: VITAMINS
     Route: 048
  7. LEVOTHYROXINE. [Concomitant]
     Active Substance: LEVOTHYROXINE
     Route: 048
  8. NUTROPIN AQ [Suspect]
     Active Substance: SOMATROPIN
     Indication: HYPOPITUITARISM
     Route: 058
  9. TYLENOL [Concomitant]
     Active Substance: ACETAMINOPHEN
     Indication: PAIN
     Route: 048
  10. NUTROPIN AQ [Suspect]
     Active Substance: SOMATROPIN
     Route: 058
  11. CORTEF [Concomitant]
     Active Substance: HYDROCORTISONE
     Indication: HYPOPITUITARISM
     Dosage: AM
     Route: 048

REACTIONS (10)
  - Thyroxine free decreased [Unknown]
  - Glomerular filtration rate increased [Unknown]
  - Conductive deafness [Unknown]
  - Dry skin [Unknown]
  - Protein total increased [Unknown]
  - Arachnoid cyst [Unknown]
  - Blood albumin increased [Unknown]
  - Eustachian tube dysfunction [Unknown]
  - Blood creatinine decreased [Unknown]
  - Blood glucose decreased [Unknown]

NARRATIVE: CASE EVENT DATE: 20140110
